FAERS Safety Report 25800464 (Version 1)
Quarter: 2025Q3

REPORT INFORMATION
  Report Type: Spontaneous
  Country: US (occurrence: US)
  Receive Date: 20250915
  Receipt Date: 20250915
  Transmission Date: 20251020
  Serious: No
  Sender: BIOCON
  Company Number: US-MIMS-BCONMC-11709

PATIENT

DRUGS (3)
  1. SEMGLEE (INSULIN GLARGINE-YFGN) [Suspect]
     Active Substance: INSULIN GLARGINE-YFGN
     Indication: Type 2 diabetes mellitus
     Dosage: 18 UNITS/ML, QD
     Route: 058
     Dates: start: 20250212
  2. SEMGLEE (INSULIN GLARGINE-YFGN) [Suspect]
     Active Substance: INSULIN GLARGINE-YFGN
  3. NOVOLOG [Concomitant]
     Active Substance: INSULIN ASPART
     Indication: Diabetes mellitus
     Dosage: 3 UNITS/ML, TID
     Route: 065

REACTIONS (2)
  - Blood glucose increased [Unknown]
  - Device leakage [Unknown]
